FAERS Safety Report 6142216-2 (Version None)
Quarter: 2009Q2

REPORT INFORMATION
  Report Type: 
  Country: None (occurrence: None)
  Receive Date: 20090403
  Receipt Date: 20080617
  Transmission Date: 20091009
  Serious: Yes (Other)
  Sender: FDA-Public Use
  Company Number: US-ASTRAZENECA-2006UW18071

PATIENT
  Age: 54 Year
  Sex: Male

DRUGS (4)
  1. SEROQUEL [Suspect]
     Indication: POST-TRAUMATIC STRESS DISORDER
     Route: 048
     Dates: start: 20040801
  2. SEROQUEL [Suspect]
     Indication: INSOMNIA
     Route: 048
     Dates: start: 20040801
  3. SEROQUEL [Suspect]
     Indication: NIGHTMARE
     Route: 048
     Dates: start: 20040801
  4. RISPERDAL [Suspect]

REACTIONS (4)
  - ANGINA PECTORIS [None]
  - HYPOAESTHESIA [None]
  - MYOCARDIAL ISCHAEMIA [None]
  - TYPE 2 DIABETES MELLITUS [None]
